FAERS Safety Report 9554770 (Version 2)
Quarter: 2013Q3

REPORT INFORMATION
  Report Type: Spontaneous
  Country: US (occurrence: US)
  Receive Date: 20130926
  Receipt Date: 20130926
  Transmission Date: 20140515
  Serious: Yes (Hospitalization)
  Sender: FDA-Public Use
  Company Number: US-BIOGENIDEC-197338

PATIENT
  Age: 43 Year
  Sex: Female
  Weight: 58 kg

DRUGS (7)
  1. AVONEX [Suspect]
     Indication: MULTIPLE SCLEROSIS
     Route: 030
     Dates: start: 20010216, end: 2004
  2. BACLOFEN [Concomitant]
     Route: 048
  3. HYRDOCHLOROTHIAZIDE [Concomitant]
     Route: 048
  4. MEDROL [Concomitant]
     Route: 048
  5. WELLBUTRIN XL [Concomitant]
     Route: 048
  6. OXYCODONE [Concomitant]
     Route: 048
  7. MECLIZINE [Concomitant]
     Route: 048

REACTIONS (6)
  - Adverse drug reaction [Unknown]
  - Hysterectomy [Unknown]
  - Spinal column stenosis [Unknown]
  - Abdominoplasty [Unknown]
  - Hernia [Unknown]
  - Post procedural complication [Unknown]
